FAERS Safety Report 13168739 (Version 1)
Quarter: 2017Q1

REPORT INFORMATION
  Report Type: Spontaneous
  Country: FR (occurrence: FR)
  Receive Date: 20170131
  Receipt Date: 20170131
  Transmission Date: 20170428
  Serious: Yes (Death, Hospitalization)
  Sender: FDA-Public Use
  Company Number: FR-BAXTER-2017BAX003174

PATIENT
  Age: 63 Year
  Sex: Male

DRUGS (11)
  1. CARFILZOMIB [Suspect]
     Active Substance: CARFILZOMIB
     Indication: PLASMA CELL MYELOMA
     Dosage: FIRST COURSE OF THE THIRD TREATMENT LINE
     Route: 042
     Dates: start: 20160905, end: 20160920
  2. CARFILZOMIB [Suspect]
     Active Substance: CARFILZOMIB
     Dosage: THIRD COURSE OF THE THIRD TREATMENT LINE
     Route: 042
     Dates: start: 20161031, end: 20161115
  3. DEXAMETHASONE. [Suspect]
     Active Substance: DEXAMETHASONE
     Dosage: THIRD COURSE OF THIRD TREATMENT LINE
     Route: 065
     Dates: start: 20161031, end: 20161115
  4. REVLIMID [Suspect]
     Active Substance: LENALIDOMIDE
     Indication: PLASMA CELL MYELOMA
     Dosage: FIRST COURSE OF THE THIRD TREATMENT LINE
     Route: 065
     Dates: start: 20160905, end: 20160920
  5. ENDOXAN 1000 MG, POUDRE POUR SOLUTION INJECTABLE [Suspect]
     Active Substance: CYCLOPHOSPHAMIDE
     Indication: PLASMA CELL MYELOMA
     Dosage: FOURTH TREATMENT LINE
     Route: 042
     Dates: start: 20161129, end: 20161129
  6. CARFILZOMIB [Suspect]
     Active Substance: CARFILZOMIB
     Dosage: SECOND COURSE OF THE THIRD TREATMENT LINE
     Route: 042
     Dates: start: 20161003, end: 20161018
  7. REVLIMID [Suspect]
     Active Substance: LENALIDOMIDE
     Dosage: SECOND COURSE OF THE THIRD TREATMENT LINE
     Route: 065
     Dates: start: 20161003, end: 20161018
  8. DEXAMETHASONE. [Suspect]
     Active Substance: DEXAMETHASONE
     Dosage: SECOND COURSE OF THE THIRD TREATMENT LINE
     Route: 065
     Dates: start: 20161003, end: 20161018
  9. REVLIMID [Suspect]
     Active Substance: LENALIDOMIDE
     Dosage: THIRD COURSE OF THE THIRD TREATMENT LINE
     Route: 065
     Dates: start: 20161031, end: 20161115
  10. DEXAMETHASONE. [Suspect]
     Active Substance: DEXAMETHASONE
     Indication: PLASMA CELL MYELOMA
     Dosage: FIRST COURSE OF THE THIRD TREATMENT LINE
     Route: 065
     Dates: start: 20160905, end: 20160920
  11. ELIQUIS [Concomitant]
     Active Substance: APIXABAN
     Indication: PRODUCT USED FOR UNKNOWN INDICATION
     Route: 065

REACTIONS (1)
  - Acute pulmonary oedema [Fatal]

NARRATIVE: CASE EVENT DATE: 20161208
